FAERS Safety Report 17409268 (Version 1)
Quarter: 2020Q1

REPORT INFORMATION
  Report Type: Spontaneous
  Country: US (occurrence: US)
  Receive Date: 20200212
  Receipt Date: 20200212
  Transmission Date: 20200409
  Serious: No
  Sender: FDA-Public Use
  Company Number: US-ASTRAZENECA-2020SE17763

PATIENT
  Age: 49 Year
  Sex: Female
  Weight: 60.8 kg

DRUGS (2)
  1. LIPITOR [Concomitant]
     Active Substance: ATORVASTATIN CALCIUM
     Indication: HYPERCHOLESTEROLAEMIA
     Route: 048
  2. SEROQUEL [Suspect]
     Active Substance: QUETIAPINE FUMARATE
     Indication: INSOMNIA
     Route: 048
     Dates: start: 2003

REACTIONS (16)
  - Hot flush [Unknown]
  - Feeling abnormal [Not Recovered/Not Resolved]
  - Arthritis [Unknown]
  - Product dose omission [Not Recovered/Not Resolved]
  - Product use in unapproved indication [Unknown]
  - Pruritus [Unknown]
  - Withdrawal syndrome [Not Recovered/Not Resolved]
  - Pain [Recovered/Resolved]
  - Night sweats [Not Recovered/Not Resolved]
  - Body height decreased [Unknown]
  - Sleep disorder [Unknown]
  - Influenza like illness [Not Recovered/Not Resolved]
  - Off label use [Unknown]
  - Respiration abnormal [Unknown]
  - Nervousness [Unknown]
  - Headache [Not Recovered/Not Resolved]

NARRATIVE: CASE EVENT DATE: 2003
